FAERS Safety Report 8524925-0 (Version None)
Quarter: 2012Q3

REPORT INFORMATION
  Report Type: 
  Country: None (occurrence: None)
  Receive Date: 20120720
  Receipt Date: 20120702
  Transmission Date: 20120928
  Serious: No
  Sender: FDA-Public Use
  Company Number: US-009507513-1207USA000401

PATIENT

DRUGS (1)
  1. JANUVIA [Suspect]
     Dosage: UNK
     Dates: start: 20111201

REACTIONS (2)
  - DIZZINESS POSTURAL [None]
  - HEADACHE [None]
